FAERS Safety Report 8499584 (Version 3)
Quarter: 2013Q4

REPORT INFORMATION
  Report Type: Spontaneous
  Country: US (occurrence: US)
  Receive Date: 20120409
  Receipt Date: 20131112
  Transmission Date: 20140711
  Serious: Yes (Other)
  Sender: FDA-Public Use
  Company Number: US-UCBSA-054563

PATIENT
  Age: 51 Year
  Sex: Female

DRUGS (2)
  1. CIMZIA [Suspect]
     Indication: CROHN^S DISEASE
     Route: 058
     Dates: start: 20091226, end: 2012
  2. 6 MP [Concomitant]
     Dosage: DAILY DOSE: 50 MG/DAY

REACTIONS (1)
  - Tuberculosis [Not Recovered/Not Resolved]
